FAERS Safety Report 20212137 (Version 1)
Quarter: 2021Q4

REPORT INFORMATION
  Report Type: Other
  Country: US (occurrence: US)
  Receive Date: 20211221
  Receipt Date: 20211221
  Transmission Date: 20220303
  Serious: No
  Sender: FDA-Public Use
  Company Number: US-ACORDA-ACO_170842_2021

PATIENT
  Age: 72 Year
  Sex: Female

DRUGS (3)
  1. INBRIJA [Suspect]
     Active Substance: LEVODOPA
     Indication: Parkinson^s disease
     Dosage: 2 DOSAGE FORM, PRN
     Dates: start: 20211104
  2. INBRIJA [Suspect]
     Active Substance: LEVODOPA
     Indication: On and off phenomenon
  3. CARBIDOPA\LEVODOPA [Concomitant]
     Active Substance: CARBIDOPA\LEVODOPA
     Indication: Product used for unknown indication
     Dosage: 25/100 MG; 1 PILL EVERY 3 HOURS
     Route: 065

REACTIONS (13)
  - Device delivery system issue [Unknown]
  - Product residue present [Unknown]
  - Device issue [Unknown]
  - Wrong technique in device usage process [Unknown]
  - Device use issue [Unknown]
  - Device issue [Unknown]
  - Product physical issue [Unknown]
  - Device delivery system issue [Unknown]
  - Device occlusion [Unknown]
  - Cough [Not Recovered/Not Resolved]
  - Drug ineffective [Unknown]
  - Thinking abnormal [Unknown]
  - Obsessive-compulsive disorder [Unknown]

NARRATIVE: CASE EVENT DATE: 20211104
